FAERS Safety Report 15168101 (Version 1)
Quarter: 2018Q3

REPORT INFORMATION
  Report Type: Report from Study
  Country: US (occurrence: US)
  Receive Date: 20180719
  Receipt Date: 20180719
  Transmission Date: 20181010
  Serious: No
  Sender: FDA-Public Use
  Company Number: US-AMGEN-USASL2018006717

PATIENT
  Sex: Female

DRUGS (1)
  1. REPATHA [Suspect]
     Active Substance: EVOLOCUMAB
     Indication: HYPERLIPIDAEMIA
     Dosage: 140 MG, Q2WK
     Route: 065
     Dates: end: 20171118

REACTIONS (4)
  - Dyspnoea [Unknown]
  - Rash vesicular [Not Recovered/Not Resolved]
  - Dizziness [Unknown]
  - Exfoliative rash [Not Recovered/Not Resolved]
